FAERS Safety Report 5914422-0 (Version None)
Quarter: 2008Q4

REPORT INFORMATION
  Report Type: 
  Country: None (occurrence: None)
  Receive Date: 20081009
  Receipt Date: 20080929
  Transmission Date: 20090506
  Serious: Yes (Other)
  Sender: FDA-Public Use
  Company Number: JP-MERCK-0810USA00453

PATIENT
  Age: 24 Year
  Sex: Male

DRUGS (3)
  1. PEPCID RPD [Suspect]
     Route: 048
     Dates: start: 20080312, end: 20080922
  2. DEPAKENE [Suspect]
     Route: 048
     Dates: start: 20060101, end: 20080922
  3. LAC-B [Concomitant]
     Route: 048
     Dates: end: 20080922

REACTIONS (1)
  - RHABDOMYOLYSIS [None]
